FAERS Safety Report 9501169 (Version 2)
Quarter: 2013Q3

REPORT INFORMATION
  Report Type: Spontaneous
  Country: NL (occurrence: NL)
  Receive Date: 20130905
  Receipt Date: 20130905
  Transmission Date: 20140515
  Serious: Yes (Death, Other)
  Sender: FDA-Public Use
  Company Number: NL-PFIZER INC-2013225774

PATIENT
  Age: 23 Year
  Sex: Male

DRUGS (3)
  1. VORICONAZOLE [Suspect]
     Indication: FUNGAL INFECTION
     Dosage: UNK
     Dates: end: 20130729
  2. LARGACTIL [Interacting]
     Indication: NAUSEA
     Dosage: UNK
  3. LARGACTIL [Interacting]
     Indication: INSOMNIA

REACTIONS (4)
  - Death [Fatal]
  - Drug interaction [Not Recovered/Not Resolved]
  - Hallucination, visual [Unknown]
  - Daydreaming [Not Recovered/Not Resolved]
